FAERS Safety Report 13409708 (Version 4)
Quarter: 2022Q4

REPORT INFORMATION
  Report Type: Spontaneous
  Country: US (occurrence: US)
  Receive Date: 20170406
  Receipt Date: 20221118
  Transmission Date: 20230113
  Serious: No
  Sender: FDA-Public Use
  Company Number: US-JNJFOC-20170224752

PATIENT
  Age: 13 Year
  Sex: Male

DRUGS (4)
  1. RISPERDAL [Suspect]
     Active Substance: RISPERIDONE
     Indication: Attention deficit hyperactivity disorder
     Route: 048
     Dates: start: 20001205, end: 20001212
  2. RISPERDAL [Suspect]
     Active Substance: RISPERIDONE
     Indication: Oppositional defiant disorder
     Route: 048
     Dates: start: 20020815, end: 20030724
  3. RISPERDAL [Suspect]
     Active Substance: RISPERIDONE
     Indication: Reactive attachment disorder
     Dosage: 1MG, 0.5 MG
     Route: 048
     Dates: start: 20030820, end: 20050523
  4. RISPERDAL [Suspect]
     Active Substance: RISPERIDONE
     Route: 048

REACTIONS (6)
  - Emotional distress [Unknown]
  - Periorbital swelling [Unknown]
  - Vomiting [Unknown]
  - Gynaecomastia [Unknown]
  - Product use in unapproved indication [Unknown]
  - Off label use [Unknown]

NARRATIVE: CASE EVENT DATE: 20001205
